FAERS Safety Report 25281199 (Version 3)
Quarter: 2025Q3

REPORT INFORMATION
  Report Type: Spontaneous
  Country: LK (occurrence: LK)
  Receive Date: 20250508
  Receipt Date: 20250901
  Transmission Date: 20251021
  Serious: Yes (Life-Threatening)
  Sender: CIPLA
  Company Number: LK-CIPLA LTD.-2025LK05239

PATIENT

DRUGS (1)
  1. ALBUTEROL [Suspect]
     Active Substance: ALBUTEROL
     Indication: Asthma
     Route: 065

REACTIONS (4)
  - Asthma [Unknown]
  - Drug dose omission by device [Unknown]
  - Device malfunction [Unknown]
  - Product packaging quantity issue [Unknown]
